FAERS Safety Report 20214369 (Version 1)
Quarter: 2021Q4

REPORT INFORMATION
  Report Type: Spontaneous
  Country: JP (occurrence: JP)
  Receive Date: 20211221
  Receipt Date: 20211221
  Transmission Date: 20220303
  Serious: Yes (Other)
  Sender: FDA-Public Use
  Company Number: JP-PFIZER INC-202101781532

PATIENT

DRUGS (2)
  1. RHEUMATREX [Suspect]
     Active Substance: METHOTREXATE SODIUM
  2. TACROLIMUS [Suspect]
     Active Substance: TACROLIMUS

REACTIONS (1)
  - Orthopaedic procedure [Unknown]
